FAERS Safety Report 8741124 (Version 8)
Quarter: 2017Q4

REPORT INFORMATION
  Report Type: Spontaneous
  Country: US (occurrence: US)
  Receive Date: 20120824
  Receipt Date: 20171102
  Transmission Date: 20180321
  Serious: No
  Sender: FDA-Public Use
  Company Number: US-ASTRAZENECA-2012SE02669

PATIENT
  Age: 76 Year
  Sex: Female
  Weight: 49.9 kg

DRUGS (11)
  1. AAREDS 2 [Concomitant]
     Indication: VITAMIN SUPPLEMENTATION
     Dosage: DAILY
  2. DILANTIN [Concomitant]
     Active Substance: PHENYTOIN
     Indication: PROPHYLAXIS
     Route: 048
  3. SYMBICORT [Suspect]
     Active Substance: BUDESONIDE\FORMOTEROL FUMARATE DIHYDRATE
     Indication: CHRONIC OBSTRUCTIVE PULMONARY DISEASE
     Route: 055
     Dates: start: 20160721
  4. PROTONIX [Concomitant]
     Active Substance: PANTOPRAZOLE SODIUM
     Indication: GASTROOESOPHAGEAL REFLUX DISEASE
     Route: 048
  5. ZANTAC [Concomitant]
     Active Substance: RANITIDINE HYDROCHLORIDE
     Indication: GASTROOESOPHAGEAL REFLUX DISEASE
     Route: 048
  6. ZOLOFT [Concomitant]
     Active Substance: SERTRALINE HYDROCHLORIDE
     Route: 048
     Dates: start: 2015
  7. ACIPHEX [Concomitant]
     Active Substance: RABEPRAZOLE SODIUM
  8. LIBRIUM [Concomitant]
     Active Substance: CHLORDIAZEPOXIDE HYDROCHLORIDE
     Indication: SEIZURE
     Route: 048
  9. SYMBICORT [Suspect]
     Active Substance: BUDESONIDE\FORMOTEROL FUMARATE DIHYDRATE
     Indication: CHRONIC OBSTRUCTIVE PULMONARY DISEASE
     Route: 055
     Dates: start: 2009, end: 201401
  10. AAREDS 2 [Concomitant]
     Indication: MINERAL SUPPLEMENTATION
     Dosage: DAILY
  11. NEXIUM [Suspect]
     Active Substance: ESOMEPRAZOLE MAGNESIUM
     Indication: GASTROOESOPHAGEAL REFLUX DISEASE
     Route: 048

REACTIONS (17)
  - Gastrooesophageal reflux disease [Unknown]
  - Condition aggravated [Unknown]
  - Fatigue [Unknown]
  - Abdominal pain upper [Unknown]
  - Laryngitis [Unknown]
  - Carbon dioxide increased [Unknown]
  - Cough [Unknown]
  - Pharyngeal erosion [Unknown]
  - Drug dose omission [Unknown]
  - Intentional product misuse [Unknown]
  - Hiatus hernia [Unknown]
  - Drug withdrawal syndrome [Unknown]
  - Sputum discoloured [Unknown]
  - Dyspnoea [Unknown]
  - Multiple allergies [Unknown]
  - Hypoacusis [Unknown]
  - Sinusitis [Unknown]
